FAERS Safety Report 8149479 (Version 4)
Quarter: 2013Q2

REPORT INFORMATION
  Report Type: Report from Study
  Country: GB (occurrence: GB)
  Receive Date: 20110922
  Receipt Date: 20130620
  Transmission Date: 20140414
  Serious: Yes (Hospitalization)
  Sender: FDA-Public Use
  Company Number: GB-ROCHE-802189

PATIENT
  Age: 51 Year
  Sex: Male
  Weight: 89 kg

DRUGS (5)
  1. VEMURAFENIB [Suspect]
     Indication: METASTATIC MALIGNANT MELANOMA
     Route: 048
     Dates: start: 20110711, end: 20110911
  2. VEMURAFENIB [Suspect]
     Route: 048
  3. PARACETAMOL [Concomitant]
     Route: 065
  4. IBUPROFEN [Concomitant]
     Route: 065
  5. ORAMORPH [Concomitant]
     Route: 065

REACTIONS (1)
  - Lung infection [Recovered/Resolved]
